FAERS Safety Report 18659217 (Version 1)
Quarter: 2020Q4

REPORT INFORMATION
  Report Type: Spontaneous
  Country: US (occurrence: US)
  Receive Date: 20201224
  Receipt Date: 20201224
  Transmission Date: 20210114
  Serious: Yes (Hospitalization, Other)
  Sender: FDA-Public Use
  Company Number: US-INDICUS PHARMA-000738

PATIENT
  Age: 28 Year
  Sex: Female

DRUGS (10)
  1. QUETIAPINE/QUETIAPINE FUMARATE [Concomitant]
     Active Substance: QUETIAPINE FUMARATE
     Dosage: TWICE DAILY
  2. LITHIUM. [Concomitant]
     Active Substance: LITHIUM
     Dosage: AT BEDTIME
  3. CARBAMAZEPINE. [Concomitant]
     Active Substance: CARBAMAZEPINE
     Dosage: THREE TIMES A DAY
  4. METFORMIN [Suspect]
     Active Substance: METFORMIN HYDROCHLORIDE
     Indication: PRODUCT USED FOR UNKNOWN INDICATION
  5. DIAZEPAM. [Concomitant]
     Active Substance: DIAZEPAM
     Dosage: THREE TIMES A DAY
  6. HALDOL [Concomitant]
     Active Substance: HALOPERIDOL
  7. DEPAKOTE [Suspect]
     Active Substance: DIVALPROEX SODIUM
     Indication: PSYCHOTHERAPY
     Dosage: AT BEDTIME
  8. THORAZINE [Suspect]
     Active Substance: CHLORPROMAZINE
     Indication: PSYCHOTHERAPY
  9. PALIPERIDONE/PALIPERIDONE PALMITATE [Concomitant]
     Active Substance: PALIPERIDONE
  10. SERTRALINE [Concomitant]
     Active Substance: SERTRALINE HYDROCHLORIDE

REACTIONS (1)
  - Seizure [Recovering/Resolving]
